FAERS Safety Report 24884756 (Version 2)
Quarter: 2025Q1

REPORT INFORMATION
  Report Type: Spontaneous
  Country: US (occurrence: US)
  Receive Date: 20250124
  Receipt Date: 20250220
  Transmission Date: 20250409
  Serious: No
  Sender: PFIZER
  Company Number: US-PFIZER INC-PV202500009357

PATIENT
  Age: 29 Year
  Sex: Female
  Weight: 86.9 kg

DRUGS (5)
  1. IBRANCE [Suspect]
     Active Substance: PALBOCICLIB
     Indication: Breast cancer female
     Dates: start: 20220613
  2. IBRANCE [Suspect]
     Active Substance: PALBOCICLIB
     Route: 048
     Dates: start: 20231218
  3. LUPRON [Concomitant]
     Active Substance: LEUPROLIDE ACETATE
     Dates: start: 20220613
  4. LETROZOLE [Concomitant]
     Active Substance: LETROZOLE
     Dates: start: 20220613
  5. ZOMETA [Concomitant]
     Active Substance: ZOLEDRONIC ACID
     Dates: start: 20220613

REACTIONS (1)
  - Liver function test increased [Unknown]
